FAERS Safety Report 25623218 (Version 4)
Quarter: 2025Q3

REPORT INFORMATION
  Report Type: Spontaneous
  Country: AR (occurrence: AR)
  Receive Date: 20250730
  Receipt Date: 20250902
  Transmission Date: 20251021
  Serious: No
  Sender: PFIZER
  Company Number: AR-PFIZER INC-202500152056

PATIENT
  Age: 13 Year
  Sex: Male

DRUGS (1)
  1. GENOTROPIN [Suspect]
     Active Substance: SOMATROPIN
     Indication: Foetal growth restriction
     Dates: start: 20250408, end: 202507

REACTIONS (2)
  - Drug dose omission by device [Unknown]
  - Product communication issue [Unknown]

NARRATIVE: CASE EVENT DATE: 20250701
